FAERS Safety Report 5827220-3 (Version None)
Quarter: 2008Q3

REPORT INFORMATION
  Report Type: 
  Country: None (occurrence: None)
  Receive Date: 20080730
  Receipt Date: 20080722
  Transmission Date: 20090109
  Serious: Yes (Hospitalization)
  Sender: FDA-Public Use
  Company Number: US-MERCK-0807USA04289

PATIENT
  Age: 64 Year
  Sex: Female

DRUGS (3)
  1. FOSAMAX [Suspect]
     Route: 048
  2. POTASSIUM (UNSPECIFIED) [Concomitant]
     Route: 065
  3. METOPROLOL [Concomitant]
     Route: 065

REACTIONS (3)
  - ARRHYTHMIA [None]
  - HYPOKALAEMIA [None]
  - MYOCARDIAL INFARCTION [None]
